FAERS Safety Report 5038525-0 (Version None)
Quarter: 2006Q2

REPORT INFORMATION
  Report Type: 
  Country: None (occurrence: None)
  Receive Date: 20060629
  Receipt Date: 20060621
  Transmission Date: 20061013
  Serious: Yes (Other)
  Sender: FDA-Public Use
  Company Number: PHBS2006BR09491

PATIENT
  Sex: Male
  Weight: 85 kg

DRUGS (1)
  1. DIOVAN [Suspect]

REACTIONS (1)
  - NEUROENDOCRINE CARCINOMA [None]
